FAERS Safety Report 4437706-4 (Version None)
Quarter: 2004Q3

REPORT INFORMATION
  Report Type: 
  Country: None (occurrence: None)
  Receive Date: 20040831
  Receipt Date: 20040513
  Transmission Date: 20050211
  Serious: No
  Sender: FDA-Public Use
  Company Number: US-GLAXOSMITHKLINE-A0510745A

PATIENT

DRUGS (2)
  1. ACYCLOVIR [Suspect]
     Indication: ILL-DEFINED DISORDER
     Route: 048
  2. NO CONCURRENT MEDICATION [Concomitant]

REACTIONS (3)
  - HEADACHE [None]
  - MUSCLE SPASMS [None]
  - MYALGIA [None]
